FAERS Safety Report 5348462-X (Version None)
Quarter: 2007Q2

REPORT INFORMATION
  Report Type: 
  Country: None (occurrence: None)
  Receive Date: 20070605
  Receipt Date: 20070521
  Transmission Date: 20071010
  Serious: Yes (Congenital Anomaly, Other)
  Sender: FDA-Public Use
  Company Number: S07-UKI-02330-02

PATIENT
  Sex: Male
  Weight: 4.3999 kg

DRUGS (1)
  1. CITALOPRAM HYDROBROMIDE [Suspect]
     Dosage: 20 MG QD TRANSPLACENTAL
     Route: 064
     Dates: start: 20061009, end: 20070314

REACTIONS (5)
  - DRUG EXPOSURE DURING PREGNANCY [None]
  - HYDRONEPHROSIS [None]
  - NEONATAL DISORDER [None]
  - PYELECTASIA [None]
  - RHESUS ANTIBODIES POSITIVE [None]
